FAERS Safety Report 7086785-7 (Version None)
Quarter: 2010Q4

REPORT INFORMATION
  Report Type: 
  Country: None (occurrence: None)
  Receive Date: 20101105
  Receipt Date: 20101027
  Transmission Date: 20110411
  Serious: Yes (Other)
  Sender: FDA-Public Use
  Company Number: FR-GILEAD-2010-0033122

PATIENT
  Sex: Female

DRUGS (6)
  1. TRUVADA [Suspect]
     Indication: HIV INFECTION
     Route: 064
     Dates: start: 20060711
  2. VIRAMUNE [Concomitant]
     Indication: HIV INFECTION
     Route: 064
     Dates: start: 20060711
  3. TARDYFERON [Concomitant]
     Indication: ANAEMIA PROPHYLAXIS
     Route: 064
  4. RHINATOIL [Concomitant]
     Indication: INFLUENZA
     Route: 064
  5. CLAMOXYL [Concomitant]
     Indication: INFLUENZA
     Route: 064
  6. AZT [Concomitant]

REACTIONS (1)
  - RESPIRATORY DISTRESS [None]
